FAERS Safety Report 7488554-2 (Version None)
Quarter: 2011Q2

REPORT INFORMATION
  Report Type: 
  Country: None (occurrence: None)
  Receive Date: 20110518
  Receipt Date: 20110509
  Transmission Date: 20111010
  Serious: Yes (Hospitalization, Other)
  Sender: FDA-Public Use
  Company Number: US-ASTRAZENECA-2011SE22548

PATIENT
  Age: 66 Year
  Sex: Male

DRUGS (9)
  1. IMODIUM MULTI-SYMPTOM RELIEF [Concomitant]
     Route: 048
  2. LOVASTATIN [Concomitant]
     Route: 048
  3. NEXIUM [Suspect]
     Route: 048
  4. CARVEDILOL [Concomitant]
     Route: 048
  5. LISINOPRIL AND HYDROCHLOROTHIAZIDE [Concomitant]
     Dosage: 20-25 MG ONCE DAILY
     Route: 048
  6. FLORANEX [Concomitant]
     Dosage: TWICE DAILY
     Route: 048
  7. CIALIS [Concomitant]
     Route: 048
  8. OXYCODONE/ACETAMINOPHEN [Concomitant]
     Dosage: 5-325 MG TABLET PRN
     Route: 048
  9. ASPIRIN [Concomitant]
     Route: 048

REACTIONS (12)
  - WOUND INFECTION [None]
  - HERNIA REPAIR [None]
  - EXPLORATIVE LAPAROTOMY [None]
  - GASTRIC POLYPS [None]
  - RENAL CYST [None]
  - CHEMOTHERAPY [None]
  - METASTATIC NEOPLASM [None]
  - COUGH [None]
  - OESOPHAGEAL CARCINOMA [None]
  - OESOPHAGECTOMY [None]
  - VOMITING [None]
  - HEPATIC CYST [None]
